FAERS Safety Report 4513529-2 (Version None)
Quarter: 2004Q4

REPORT INFORMATION
  Report Type: 
  Country: None (occurrence: None)
  Receive Date: 20041124
  Receipt Date: 20041108
  Transmission Date: 20050328
  Serious: No
  Sender: FDA-Public Use
  Company Number: A02200303217

PATIENT
  Age: 56 Year
  Sex: Female

DRUGS (6)
  1. ELOXATINE - (OXALIPLATIN) - POWDER - 5 MG/ML [Suspect]
     Indication: BILE DUCT CANCER
     Dosage: 150 MG OTHER INTRAVENOUS NOS
     Route: 042
     Dates: start: 20030101, end: 20030101
  2. ELOXATINE - (OXALIPLATIN) - POWDER - 5 MG/ML [Suspect]
     Indication: METASTASES TO LIVER
     Dosage: 150 MG OTHER INTRAVENOUS NOS
     Route: 042
     Dates: start: 20030101, end: 20030101
  3. GEMZAR [Concomitant]
  4. CORTICOSTEROIDS (CORTICOSTEROID NOS) [Concomitant]
  5. ONDANSETRON HYDROCHLORIDE [Concomitant]
  6. CALCIUM (CALCIUM/MAGNESIUM) [Concomitant]

REACTIONS (9)
  - ASTHENIA [None]
  - BLINDNESS TRANSIENT [None]
  - HAEMORRHAGE [None]
  - LOCAL REACTION [None]
  - LOSS OF CONSCIOUSNESS [None]
  - NASOPHARYNGITIS [None]
  - PARAESTHESIA [None]
  - RETINAL VEIN THROMBOSIS [None]
  - VISUAL DISTURBANCE [None]
